FAERS Safety Report 7903632-9 (Version None)
Quarter: 2011Q4

REPORT INFORMATION
  Report Type: 
  Country: None (occurrence: None)
  Receive Date: 20111109
  Receipt Date: 20111109
  Transmission Date: 20120403
  Serious: Yes (Other)
  Sender: FDA-Public Use
  Company Number: FR-PFIZER INC-2011192063

PATIENT
  Age: 53 Year
  Sex: Male

DRUGS (2)
  1. OXCARBAZEPINE [Suspect]
  2. AMLODIPINE [Suspect]

REACTIONS (2)
  - CONVULSION [None]
  - HYPONATRAEMIA [None]
